FAERS Safety Report 17962492 (Version 1)
Quarter: 2020Q2

REPORT INFORMATION
  Report Type: Spontaneous
  Country: US (occurrence: US)
  Receive Date: 20200629
  Receipt Date: 20200629
  Transmission Date: 20200714
  Serious: Yes (Other)
  Sender: FDA-Public Use
  Company Number: None

PATIENT
  Age: 30 Year
  Sex: Female
  Weight: 63 kg

DRUGS (5)
  1. MULTIHANCE [Suspect]
     Active Substance: GADOBENATE DIMEGLUMINE
     Indication: MIGRAINE
     Dates: start: 20190630, end: 20190630
  2. MULTIVITAMIN [Concomitant]
     Active Substance: VITAMINS
  3. VITAMIN E [Concomitant]
     Active Substance: .ALPHA.-TOCOPHEROL
  4. BEE POLLEN [Concomitant]
     Active Substance: BEE POLLEN
  5. DESSICATED LIVER [Concomitant]

REACTIONS (19)
  - Anxiety [None]
  - Dry skin [None]
  - Headache [None]
  - Renal pain [None]
  - Blood cholesterol increased [None]
  - Skin fibrosis [None]
  - Tinnitus [None]
  - Vision blurred [None]
  - Hydronephrosis [None]
  - Nausea [None]
  - Kidney fibrosis [None]
  - Depression [None]
  - Red blood cell count increased [None]
  - Fatigue [None]
  - Pruritus [None]
  - Feeling abnormal [None]
  - White blood cell count decreased [None]
  - Erythema [None]
  - Skin burning sensation [None]

NARRATIVE: CASE EVENT DATE: 20190630
